FAERS Safety Report 8838644 (Version 3)
Quarter: 2012Q4

REPORT INFORMATION
  Report Type: 
  Country: US (occurrence: US)
  Receive Date: 20121012
  Receipt Date: 20121026
  Transmission Date: 20130627
  Serious: Yes (Life-Threatening)
  Sender: FDA-Public Use
  Company Number: US-009507513-1208USA000177

PATIENT
  Age: 77 Year
  Sex: Male

DRUGS (2)
  1. ZOSTAVAX [Suspect]
     Indication: PROPHYLAXIS
     Route: 058
     Dates: start: 20120610, end: 20120610
  2. ZOCOR [Interacting]
     Dosage: 40 mg, UNK
     Route: 048
     Dates: start: 2009, end: 20120614

REACTIONS (3)
  - Thrombocytopenia [Recovered/Resolved]
  - Adverse event [Unknown]
  - Drug interaction [Unknown]
